FAERS Safety Report 8154097-6 (Version None)
Quarter: 2012Q1

REPORT INFORMATION
  Report Type: 
  Country: None (occurrence: None)
  Receive Date: 20120221
  Receipt Date: 20120216
  Transmission Date: 20120608
  Serious: Yes (Hospitalization, Disabling, Other)
  Sender: FDA-Public Use
  Company Number: US-MERCK-1111USA01298

PATIENT
  Age: 61 Year
  Sex: Female

DRUGS (4)
  1. FOSAMAX [Suspect]
     Indication: OSTEOPOROSIS PROPHYLAXIS
     Route: 048
     Dates: end: 20100101
  2. VITAMIN D (UNSPECIFIED) AND CALCIUM (UNSPECIFIED) [Concomitant]
     Route: 065
     Dates: start: 19910101
  3. ALENDRONATE SODIUM [Suspect]
     Route: 065
  4. CHOLECALCIFEROL [Concomitant]
     Route: 065
     Dates: start: 19910101

REACTIONS (5)
  - FEMUR FRACTURE [None]
  - POST PROCEDURAL INFECTION [None]
  - BALANCE DISORDER [None]
  - LOW TURNOVER OSTEOPATHY [None]
  - SKIN CANCER [None]
